FAERS Safety Report 7562182-2 (Version None)
Quarter: 2011Q2

REPORT INFORMATION
  Report Type: 
  Country: None (occurrence: None)
  Receive Date: 20110614
  Receipt Date: 20110531
  Transmission Date: 20111010
  Serious: Yes (Hospitalization)
  Sender: FDA-Public Use
  Company Number: 2011MA006577

PATIENT
  Age: 44 Year
  Sex: Male

DRUGS (4)
  1. ETHAMBUTOL [Concomitant]
  2. ISONIAZID [Concomitant]
  3. PYRAZINAMIDE [Concomitant]
  4. RIFAMPIN [Suspect]
     Indication: TUBERCULOSIS
     Dosage: 600 MG;OD;PO
     Route: 048

REACTIONS (12)
  - HAEMATOCRIT DECREASED [None]
  - RED BLOOD CELL SEDIMENTATION RATE INCREASED [None]
  - THROMBOCYTOPENIA [None]
  - HAEMOGLOBIN DECREASED [None]
  - IMMUNE RECONSTITUTION SYNDROME [None]
  - ACUTE RESPIRATORY DISTRESS SYNDROME [None]
  - PSEUDOMONAS INFECTION [None]
  - DECREASED APPETITE [None]
  - SERUM FERRITIN INCREASED [None]
  - ASPARTATE AMINOTRANSFERASE INCREASED [None]
  - ALANINE AMINOTRANSFERASE INCREASED [None]
  - C-REACTIVE PROTEIN INCREASED [None]
